FAERS Safety Report 18697350 (Version 1)
Quarter: 2021Q1

REPORT INFORMATION
  Report Type: Other
  Country: RU (occurrence: RU)
  Receive Date: 20210105
  Receipt Date: 20210105
  Transmission Date: 20210419
  Serious: Yes (Life-Threatening, Hospitalization, Other)
  Sender: FDA-Public Use
  Company Number: RU-VALIDUS PHARMACEUTICALS LLC-RU-2020VAL001095

PATIENT
  Age: 45 Year
  Sex: Female

DRUGS (2)
  1. TRENTAL [Suspect]
     Active Substance: PENTOXIFYLLINE
     Indication: VARICOSE VEIN
     Dosage: RECEPTION FOR 7 DAYS
     Route: 048
  2. TROXERUTIN [Suspect]
     Active Substance: TROXERUTIN
     Indication: VARICOSE VEIN
     Dosage: RECEPTION FOR 7 DAYS
     Route: 048

REACTIONS (1)
  - Angioedema [Recovered/Resolved]

NARRATIVE: CASE EVENT DATE: 20020409
